FAERS Safety Report 15155049 (Version 2)
Quarter: 2019Q3

REPORT INFORMATION
  Report Type: Report from Study
  Country: FR (occurrence: FR)
  Receive Date: 20180717
  Receipt Date: 20190704
  Transmission Date: 20191004
  Serious: Yes (Hospitalization, Other)
  Sender: FDA-Public Use
  Company Number: FR-BRISTOL-MYERS SQUIBB COMPANY-BMS-2018-064562

PATIENT
  Age: 76 Year
  Sex: Male

DRUGS (1)
  1. NIVOLUMAB [Suspect]
     Active Substance: NIVOLUMAB
     Indication: LUNG NEOPLASM MALIGNANT
     Dosage: 230 MG, Q2WK
     Route: 042
     Dates: start: 20170905, end: 20171110

REACTIONS (11)
  - Pyrexia [Unknown]
  - Cough [Unknown]
  - Systemic candida [Unknown]
  - Bacteraemia [Unknown]
  - Gait disturbance [Unknown]
  - Tumour associated fever [Unknown]
  - Lung abscess [Unknown]
  - Neoplasm [Unknown]
  - Hyperthermia [Recovered/Resolved]
  - Decreased appetite [Unknown]
  - Vomiting [Unknown]

NARRATIVE: CASE EVENT DATE: 20170905
